FAERS Safety Report 11423847 (Version 1)
Quarter: 2015Q3

REPORT INFORMATION
  Report Type: Spontaneous
  Country: US (occurrence: US)
  Receive Date: 20150827
  Receipt Date: 20150827
  Transmission Date: 20151125
  Serious: No
  Sender: FDA-Public Use
  Company Number: US-JNJFOC-20150613227

PATIENT
  Age: 7 Year
  Sex: Female
  Weight: 40.82 kg

DRUGS (2)
  1. CHILDRENS MOTRIN [Suspect]
     Active Substance: IBUPROFEN
     Indication: HEADACHE
     Dosage: 2 TEASPOONS 1 DOSE BEFORE BED
     Route: 048
     Dates: start: 20150615, end: 20150615
  2. CHILDRENS MOTRIN [Suspect]
     Active Substance: IBUPROFEN
     Route: 048

REACTIONS (1)
  - Rash [Not Recovered/Not Resolved]
